FAERS Safety Report 20448836 (Version 1)
Quarter: 2022Q1

REPORT INFORMATION
  Report Type: Spontaneous
  Country: US (occurrence: US)
  Receive Date: 20220209
  Receipt Date: 20220209
  Transmission Date: 20220424
  Serious: No
  Sender: FDA-Public Use
  Company Number: US-TEVA-2022-US-2004030

PATIENT
  Age: 9 Month
  Sex: Male

DRUGS (1)
  1. AMOXICILLIN [Suspect]
     Active Substance: AMOXICILLIN
     Indication: Ear infection
     Dosage: 250/5 MG/ML
     Route: 048
     Dates: start: 20220125

REACTIONS (2)
  - Diarrhoea [Not Recovered/Not Resolved]
  - Hiccups [Unknown]

NARRATIVE: CASE EVENT DATE: 20220126
